FAERS Safety Report 14806727 (Version 2)
Quarter: 2018Q3

REPORT INFORMATION
  Report Type: Report from Study
  Country: US (occurrence: US)
  Receive Date: 20180425
  Receipt Date: 20180719
  Transmission Date: 20181010
  Serious: No
  Sender: FDA-Public Use
  Company Number: US-AMGEN-USASL2018009652

PATIENT
  Sex: Male

DRUGS (1)
  1. REPATHA [Suspect]
     Active Substance: EVOLOCUMAB
     Indication: HYPERCHOLESTEROLAEMIA
     Dosage: 140 MG, Q2WK
     Route: 065

REACTIONS (6)
  - Nasal discomfort [Recovered/Resolved]
  - Sluggishness [Unknown]
  - Arthritis [Unknown]
  - Pain [Unknown]
  - Skin exfoliation [Recovered/Resolved]
  - Rhinorrhoea [Recovered/Resolved]
